FAERS Safety Report 21799507 (Version 1)
Quarter: 2022Q4

REPORT INFORMATION
  Report Type: Spontaneous
  Country: US (occurrence: None)
  Receive Date: 20221229
  Receipt Date: 20221229
  Transmission Date: 20230113
  Serious: Yes (Other)
  Sender: FDA-Public Use
  Company Number: None

PATIENT
  Age: 66 Year
  Sex: Male
  Weight: 82.35 kg

DRUGS (3)
  1. CAREONE ACETAMINOPHEN [Suspect]
     Active Substance: ACETAMINOPHEN
     Indication: Pyrexia
     Dosage: OTHER QUANTITY : 1 CAPSULE(S);?FREQUENCY : AS NEEDED;?
     Route: 048
     Dates: start: 20221228, end: 20221229
  2. TYLENOL PM [Suspect]
     Active Substance: ACETAMINOPHEN\DIPHENHYDRAMINE
  3. Multivitamin for Men 50+ [Concomitant]

REACTIONS (1)
  - Pruritus [None]

NARRATIVE: CASE EVENT DATE: 20221228
